FAERS Safety Report 23442099 (Version 2)
Quarter: 2024Q1

REPORT INFORMATION
  Report Type: Report from Study
  Country: AE (occurrence: None)
  Receive Date: 20240125
  Receipt Date: 20240214
  Transmission Date: 20240409
  Serious: Yes (Hospitalization)
  Sender: FDA-Public Use
  Company Number: 2024A015226

PATIENT
  Age: 65 Year
  Sex: Male
  Weight: 126 kg

DRUGS (3)
  1. EVUSHELD [Suspect]
     Active Substance: CILGAVIMAB\TIXAGEVIMAB
     Indication: COVID-19
     Dosage: 600.0MG ONCE/SINGLE ADMINISTRATION
     Route: 030
     Dates: start: 20230116
  2. INSULIN NOS [Concomitant]
     Active Substance: INSULIN NOS
     Indication: Type 2 diabetes mellitus
     Dosage: UNK
     Route: 058
     Dates: start: 20240118
  3. INSULIN NOS [Concomitant]
     Active Substance: INSULIN NOS
     Indication: Hyperglycaemia
     Dosage: UNK
     Route: 058
     Dates: start: 20240118

REACTIONS (1)
  - COVID-19 [Recovered/Resolved]

NARRATIVE: CASE EVENT DATE: 20240111
